FAERS Safety Report 9458171 (Version 1)
Quarter: 2013Q3

REPORT INFORMATION
  Report Type: Spontaneous
  Country: US (occurrence: None)
  Receive Date: 20130812
  Receipt Date: 20130812
  Transmission Date: 20140515
  Serious: Yes (Other)
  Sender: FDA-Public Use
  Company Number: None

PATIENT
  Sex: 0

DRUGS (1)
  1. TECFIDERA [Suspect]
     Indication: MULTIPLE SCLEROSIS
     Dosage: 120MG BID ORAL
     Route: 048
     Dates: start: 20130710, end: 20130711

REACTIONS (6)
  - Diarrhoea [None]
  - Nausea [None]
  - Vertigo [None]
  - Pruritus [None]
  - Asthenia [None]
  - Dehydration [None]
